FAERS Safety Report 23747002 (Version 1)
Quarter: 2024Q2

REPORT INFORMATION
  Report Type: Other
  Country: FR (occurrence: FR)
  Receive Date: 20240416
  Receipt Date: 20240416
  Transmission Date: 20240716
  Serious: Yes (Hospitalization)
  Sender: FDA-Public Use
  Company Number: None

PATIENT
  Age: 31 Year
  Sex: Female

DRUGS (2)
  1. IBUPROFEN [Suspect]
     Active Substance: IBUPROFEN
     Indication: Pain
     Dosage: 1200 MILLIGRAM PER DAY (QD) 400 MG X3/J
     Route: 048
     Dates: start: 20240305
  2. KETOPROFEN [Suspect]
     Active Substance: KETOPROFEN
     Indication: Headache
     Dosage: UNK
     Route: 065
     Dates: start: 20240314, end: 20240314

REACTIONS (1)
  - Meningitis aseptic [Recovered/Resolved]

NARRATIVE: CASE EVENT DATE: 20240310
